FAERS Safety Report 4735274-0 (Version None)
Quarter: 2005Q3

REPORT INFORMATION
  Report Type: 
  Country: None (occurrence: None)
  Receive Date: 20050803
  Receipt Date: 20050721
  Transmission Date: 20060218
  Serious: Yes (Hospitalization, Other)
  Sender: FDA-Public Use
  Company Number: 2005105770

PATIENT
  Age: 43 Year
  Sex: Male

DRUGS (5)
  1. PREDNISONE TAB [Suspect]
     Indication: DYSPNOEA
     Dosage: 20 MG (20 MG, 1 IN 1 D), ORAL
     Route: 048
     Dates: start: 20050101, end: 20050601
  2. PREDNISONE TAB [Suspect]
     Indication: HEART RATE INCREASED
     Dosage: 20 MG (20 MG, 1 IN 1 D), ORAL
     Route: 048
     Dates: start: 20050101, end: 20050601
  3. PREDNISONE TAB [Suspect]
     Indication: ULCER
     Dosage: 20 MG (20 MG, 1 IN 1 D), ORAL
     Route: 048
     Dates: start: 20050101, end: 20050601
  4. XOPENEX [Concomitant]
  5. PLAQUENIL [Concomitant]

REACTIONS (9)
  - ARTHROPATHY [None]
  - IMMUNE SYSTEM DISORDER [None]
  - INFECTION [None]
  - MUSCLE SPASMS [None]
  - PARAESTHESIA [None]
  - PYREXIA [None]
  - SKIN LESION [None]
  - WEIGHT DECREASED [None]
  - WHITE BLOOD CELL COUNT DECREASED [None]
